FAERS Safety Report 24351236 (Version 1)
Quarter: 2024Q3

REPORT INFORMATION
  Report Type: Report from Study
  Country: DE (occurrence: DE)
  Receive Date: 20240923
  Receipt Date: 20240923
  Transmission Date: 20241017
  Serious: No
  Sender: ROCHE
  Company Number: DE-ROCHE-3542011

PATIENT
  Age: 77 Year
  Sex: Female
  Weight: 59.0 kg

DRUGS (2)
  1. TRASTUZUMAB [Suspect]
     Active Substance: TRASTUZUMAB
     Indication: Neoplasm malignant
     Dosage: DATE OF MOST RECENT DOSE OF 312 MG TRASTUZUMAB: 05/JAN/2023
     Route: 041
     Dates: start: 20221216, end: 20230126
  2. CARBOPLATIN [Suspect]
     Active Substance: CARBOPLATIN
     Indication: Neoplasm malignant
     Dosage: DATE OF MOST RECENT DOSE OF 296 MG CARBOPLATIN PRIOR TO AE/SAE ONSET: 05/JAN/2023
     Route: 042
     Dates: start: 20221216

REACTIONS (1)
  - Leukopenia [Not Recovered/Not Resolved]

NARRATIVE: CASE EVENT DATE: 20230126
